FAERS Safety Report 7310410-0 (Version None)
Quarter: 2011Q1

REPORT INFORMATION
  Report Type: 
  Country: None (occurrence: None)
  Receive Date: 20110210
  Receipt Date: 20110131
  Transmission Date: 20110831
  Serious: Yes (Hospitalization, Other)
  Sender: FDA-Public Use
  Company Number: 2009AC000368

PATIENT
  Age: 67 Year
  Sex: Female

DRUGS (39)
  1. DIGOXIN [Suspect]
     Dosage: 125 MCG
     Dates: start: 20071205
  2. DIGOXIN [Suspect]
     Dosage: PO
     Route: 048
     Dates: start: 19780101
  3. MEDROXYPROGESTERONE [Concomitant]
  4. ALDOME [Concomitant]
  5. CAPTOPRIL [Concomitant]
  6. ADENOSINE [Concomitant]
  7. TYLENOL [Concomitant]
  8. DIGOXIN [Suspect]
     Dosage: .125 MG, QD, PO
     Route: 048
     Dates: start: 20050401, end: 20080401
  9. HYDROCHLOROTHIAZIDE [Concomitant]
  10. LEVAQUIN [Concomitant]
  11. ASPIRIN [Concomitant]
  12. PRAVASTATIN [Concomitant]
  13. TOPROL-XL [Concomitant]
  14. DIAZEPAM [Concomitant]
  15. DILTIAZEM [Concomitant]
  16. CARDIZEM [Concomitant]
  17. CELEBREX [Concomitant]
  18. ARIMIDEX [Concomitant]
  19. TENEX [Concomitant]
  20. VERAPAMIL [Concomitant]
  21. IBUPROFEN [Concomitant]
  22. XANAX [Concomitant]
  23. COZAAR [Concomitant]
  24. MECLIZINE [Concomitant]
  25. METOPROLOL [Concomitant]
  26. CLONIDINE [Concomitant]
  27. ENALOPRIL [Concomitant]
  28. PROVERA [Concomitant]
  29. DIGOXIN [Suspect]
     Dosage: .25 MG, QD, PO
     Route: 048
     Dates: start: 20020101, end: 20050401
  30. ATENOLOL [Concomitant]
  31. GENTAMICIN [Concomitant]
  32. AMOXICILLIN [Concomitant]
  33. FEMARA [Concomitant]
  34. DIGOXIN [Suspect]
     Dosage: 250 MCG, PO
     Route: 048
     Dates: start: 20071123, end: 20071203
  35. TRIAMTERENE [Concomitant]
  36. PREMARIN [Concomitant]
  37. CARTIA XT [Concomitant]
  38. VASOTEX [Concomitant]
  39. POTASSIUM [Concomitant]

REACTIONS (52)
  - INJURY [None]
  - AORTIC STENOSIS [None]
  - DRY MOUTH [None]
  - HYPERCHOLESTEROLAEMIA [None]
  - VENTRICULAR HYPOKINESIA [None]
  - DIZZINESS [None]
  - SUPRAVENTRICULAR TACHYCARDIA [None]
  - REFUSAL OF TREATMENT BY PATIENT [None]
  - HOT FLUSH [None]
  - SINUS BRADYCARDIA [None]
  - SUPRAVENTRICULAR EXTRASYSTOLES [None]
  - ABNORMAL DREAMS [None]
  - AORTIC VALVE INCOMPETENCE [None]
  - CARDIAC VALVE DISEASE [None]
  - FATIGUE [None]
  - DEPRESSED MOOD [None]
  - BLOOD PRESSURE INCREASED [None]
  - HELICOBACTER GASTRITIS [None]
  - INCONTINENCE [None]
  - LEFT ATRIAL DILATATION [None]
  - TRICUSPID VALVE INCOMPETENCE [None]
  - ECONOMIC PROBLEM [None]
  - ATRIOVENTRICULAR BLOCK FIRST DEGREE [None]
  - PYREXIA [None]
  - TACHYPNOEA [None]
  - WEIGHT DECREASED [None]
  - PRESYNCOPE [None]
  - MITRAL VALVE INCOMPETENCE [None]
  - LOSS OF CONSCIOUSNESS [None]
  - PULMONARY HYPERTENSION [None]
  - ELECTROCARDIOGRAM ST SEGMENT ABNORMAL [None]
  - ELECTROCARDIOGRAM T WAVE INVERSION [None]
  - PALLOR [None]
  - HYPOVENTILATION [None]
  - HYPOAESTHESIA [None]
  - PALPITATIONS [None]
  - SYNCOPE [None]
  - CHEST DISCOMFORT [None]
  - CARDIOACTIVE DRUG LEVEL INCREASED [None]
  - HYPERTENSIVE HEART DISEASE [None]
  - NAUSEA [None]
  - HYPERHIDROSIS [None]
  - OEDEMA PERIPHERAL [None]
  - CARDIOMEGALY [None]
  - BREAST MASS [None]
  - ILL-DEFINED DISORDER [None]
  - DYSPNOEA [None]
  - HEADACHE [None]
  - CHEST PAIN [None]
  - CARDIAC MURMUR [None]
  - SINUS TACHYCARDIA [None]
  - MYOCARDIAL ISCHAEMIA [None]
